FAERS Safety Report 6522583-8 (Version None)
Quarter: 2009Q4

REPORT INFORMATION
  Report Type: 
  Country: None (occurrence: None)
  Receive Date: 20091224
  Receipt Date: 20091216
  Transmission Date: 20100525
  Serious: Yes (Hospitalization)
  Sender: FDA-Public Use
  Company Number: 2009029713

PATIENT
  Age: 80 Year
  Sex: Male
  Weight: 87 kg

DRUGS (1)
  1. TREANDA [Suspect]
     Indication: CHRONIC LYMPHOCYTIC LEUKAEMIA
     Dosage: INTRAVENOUS
     Route: 042

REACTIONS (3)
  - CELLULITIS [None]
  - IMPAIRED HEALING [None]
  - INFUSION SITE EXTRAVASATION [None]
